FAERS Safety Report 16699020 (Version 1)
Quarter: 2019Q3

REPORT INFORMATION
  Report Type: Spontaneous
  Country: US (occurrence: US)
  Receive Date: 20190813
  Receipt Date: 20190813
  Transmission Date: 20191004
  Serious: No
  Sender: FDA-Public Use
  Company Number: US-PERRIGO-19US002450

PATIENT
  Age: 74 Year
  Sex: Male

DRUGS (2)
  1. LORATADINE. [Suspect]
     Active Substance: LORATADINE
     Indication: RHINORRHOEA
  2. LORATADINE. [Suspect]
     Active Substance: LORATADINE
     Indication: SNEEZING
     Dosage: 10 MG, BID
     Route: 048
     Dates: start: 20190215, end: 20190217

REACTIONS (2)
  - Drug ineffective [Unknown]
  - Inappropriate schedule of product administration [Recovered/Resolved]

NARRATIVE: CASE EVENT DATE: 20190215
